FAERS Safety Report 4763515-2 (Version None)
Quarter: 2005Q3

REPORT INFORMATION
  Report Type: 
  Country: None (occurrence: None)
  Receive Date: 20050908
  Receipt Date: 20050826
  Transmission Date: 20060218
  Serious: Yes (Hospitalization, Other)
  Sender: FDA-Public Use
  Company Number: US-JNJFOC-20040908135

PATIENT
  Sex: Male

DRUGS (8)
  1. RISPERDAL [Suspect]
  2. RISPERDAL [Suspect]
  3. RISPERDAL [Suspect]
     Indication: DRUG USE FOR UNKNOWN INDICATION
  4. CLONIDINE [Concomitant]
     Indication: HYPERTENSION
     Route: 065
  5. DILTIAZEM HCL [Concomitant]
     Indication: HYPERTENSION
     Route: 065
  6. AMARYL [Concomitant]
     Indication: DIABETES MELLITUS
     Route: 065
  7. ZYRTEC [Concomitant]
     Dosage: AS NEEDED
     Route: 065
  8. ALLEGRA [Concomitant]
     Route: 065

REACTIONS (8)
  - DIABETES MELLITUS [None]
  - GASTRIC DISORDER [None]
  - GASTROINTESTINAL DISORDER [None]
  - NEPHROLITHIASIS [None]
  - PAIN [None]
  - PANCREATITIS [None]
  - SINUS TACHYCARDIA [None]
  - URINARY TRACT INFECTION [None]
